FAERS Safety Report 9535295 (Version 2)
Quarter: 2013Q3

REPORT INFORMATION
  Report Type: Spontaneous
  Country: US (occurrence: US)
  Receive Date: 20130918
  Receipt Date: 20130918
  Transmission Date: 20140515
  Serious: No
  Sender: FDA-Public Use
  Company Number: US-PURDUE-USA-2012-0086852

PATIENT
  Sex: Female

DRUGS (2)
  1. DILAUDID INJECTION [Suspect]
     Indication: PRODUCT USED FOR UNKNOWN INDICATION
     Dosage: 2 MG/ML, UNK
  2. DILAUDID INJECTION [Suspect]
     Dosage: 4 MG/ML, UNK

REACTIONS (2)
  - Drug ineffective [Unknown]
  - Asthenia [Unknown]
